FAERS Safety Report 6842319-0 (Version None)
Quarter: 2010Q3

REPORT INFORMATION
  Report Type: 
  Country: None (occurrence: None)
  Receive Date: 20100714
  Receipt Date: 20070724
  Transmission Date: 20110219
  Serious: No
  Sender: FDA-Public Use
  Company Number: US-PFIZER INC-2007062684

PATIENT
  Sex: Female
  Weight: 52.2 kg

DRUGS (9)
  1. CHANTIX [Suspect]
     Indication: SMOKING CESSATION THERAPY
     Route: 048
     Dates: start: 20070713, end: 20070724
  2. PREMARIN [Concomitant]
     Route: 048
  3. MELOXICAM [Concomitant]
     Route: 048
  4. HYZAAR [Concomitant]
     Route: 048
  5. ASPIRIN [Concomitant]
     Route: 048
  6. ONE-A-DAY [Concomitant]
     Route: 048
  7. ASACOL [Concomitant]
     Route: 048
  8. PRAVASTATIN [Concomitant]
     Indication: BLOOD CHOLESTEROL
     Route: 048
  9. TOPROL-XL [Concomitant]
     Indication: BLOOD PRESSURE
     Route: 048

REACTIONS (2)
  - FATIGUE [None]
  - NAUSEA [None]
